FAERS Safety Report 12958126 (Version 1)
Quarter: 2016Q4

REPORT INFORMATION
  Report Type: Spontaneous
  Country: US (occurrence: US)
  Receive Date: 20161120
  Receipt Date: 20161120
  Transmission Date: 20170207
  Serious: Yes (Other)
  Sender: FDA-Public Use
  Company Number: US-ALEXION PHARMACEUTICALS INC.-A201608901

PATIENT
  Age: 49 Year
  Sex: Female
  Weight: 77.5 kg

DRUGS (2)
  1. SOLIRIS [Suspect]
     Active Substance: ECULIZUMAB
     Indication: PAROXYSMAL NOCTURNAL HAEMOGLOBINURIA
     Dosage: 900 MG, Q2W
     Route: 042
     Dates: start: 200704
  2. SODIUM CHLORIDE. [Concomitant]
     Active Substance: SODIUM CHLORIDE
     Indication: PRODUCT USED FOR UNKNOWN INDICATION
     Dosage: 250 UNK, UNK
     Route: 042

REACTIONS (10)
  - Pain [Unknown]
  - Seasonal allergy [Unknown]
  - Fatigue [Unknown]
  - Amenorrhoea [Unknown]
  - Macular fibrosis [Unknown]
  - Haemolytic anaemia [Unknown]
  - Skin papilloma [Unknown]
  - Dermatitis contact [Unknown]
  - Iron overload [Unknown]
  - Eczema [Unknown]

NARRATIVE: CASE EVENT DATE: 2012
